FAERS Safety Report 16946762 (Version 1)
Quarter: 2019Q4

REPORT INFORMATION
  Report Type: Spontaneous
  Country: US (occurrence: US)
  Receive Date: 20190830
  Receipt Date: 20190830
  Transmission Date: 20200122
  Serious: Yes (Hospitalization)
  Sender: FDA-Public Use
  Company Number: None

PATIENT
  Age: 97 Year
  Sex: Male
  Weight: 68.04 kg

DRUGS (1)
  1. HALOPERIDOL. [Suspect]
     Active Substance: HALOPERIDOL
     Indication: DELIRIUM
     Route: 030
     Dates: start: 20190623, end: 20190623

REACTIONS (6)
  - Suicidal ideation [None]
  - Somnolence [None]
  - Mental status changes [None]
  - Confusional state [None]
  - Unresponsive to stimuli [None]
  - Agitation [None]

NARRATIVE: CASE EVENT DATE: 20190623
